FAERS Safety Report 9144392 (Version 1)
Quarter: 2013Q1

REPORT INFORMATION
  Report Type: Spontaneous
  Country: US (occurrence: US)
  Receive Date: 20130306
  Receipt Date: 20130306
  Transmission Date: 20140127
  Serious: No
  Sender: FDA-Public Use
  Company Number: US-009507513-1303USA002528

PATIENT
  Age: 36 Year
  Sex: Female

DRUGS (1)
  1. AFRIN [Suspect]
     Indication: NASAL CONGESTION
     Dosage: 2 DF, UNKNOWN
     Route: 045

REACTIONS (3)
  - Discomfort [Recovered/Resolved]
  - Burning sensation [Recovered/Resolved]
  - Upper-airway cough syndrome [Unknown]
